FAERS Safety Report 7597012-6 (Version None)
Quarter: 2011Q3

REPORT INFORMATION
  Report Type: 
  Country: None (occurrence: None)
  Receive Date: 20110708
  Receipt Date: 20110704
  Transmission Date: 20111222
  Serious: Yes (Other)
  Sender: FDA-Public Use
  Company Number: BR-B.I. PHARMACEUTICALS,INC./RIDGEFIELD-2011-BR-00643BR

PATIENT
  Sex: Male

DRUGS (1)
  1. CLONIDINE HYDROCHLORIDE [Suspect]
     Indication: BLOOD PRESSURE INCREASED
     Route: 048
     Dates: start: 20010101

REACTIONS (2)
  - BLOOD PRESSURE INCREASED [None]
  - DRUG INEFFECTIVE [None]
